FAERS Safety Report 7046752-6 (Version None)
Quarter: 2010Q4

REPORT INFORMATION
  Report Type: 
  Country: None (occurrence: None)
  Receive Date: 20101015
  Receipt Date: 20101005
  Transmission Date: 20110411
  Serious: Yes (Death, Life-Threatening, Hospitalization)
  Sender: FDA-Public Use
  Company Number: GB-JNJFOC-20101001482

PATIENT
  Age: 44 Year
  Sex: Male
  Weight: 81.9 kg

DRUGS (3)
  1. INFLIXIMAB, RECOMBINANT [Suspect]
     Indication: CROHN'S DISEASE
     Route: 042
  2. INFLIXIMAB, RECOMBINANT [Suspect]
     Route: 042
  3. INFLIXIMAB, RECOMBINANT [Suspect]
     Dosage: 2 INFUSIONS ON UNSPECIFIED DATES
     Route: 042

REACTIONS (1)
  - PROSTATE CANCER METASTATIC [None]
